FAERS Safety Report 14725551 (Version 1)
Quarter: 2018Q2

REPORT INFORMATION
  Report Type: Spontaneous
  Country: IR (occurrence: IR)
  Receive Date: 20180406
  Receipt Date: 20180406
  Transmission Date: 20180711
  Serious: Yes (Hospitalization)
  Sender: FDA-Public Use
  Company Number: IR-STRIDES ARCOLAB LIMITED-2018SP002537

PATIENT

DRUGS (9)
  1. BUSPIRONE HYDROCHLORIDE. [Suspect]
     Active Substance: BUSPIRONE HYDROCHLORIDE
     Indication: PRODUCT USED FOR UNKNOWN INDICATION
     Dosage: 10 MG, TID
     Route: 065
  2. HYDROCHLOROTHIAZIDE. [Suspect]
     Active Substance: HYDROCHLOROTHIAZIDE
     Indication: PRODUCT USED FOR UNKNOWN INDICATION
     Dosage: 5 MG PER DAY
     Route: 065
  3. PREDNISOLONE. [Concomitant]
     Active Substance: PREDNISOLONE
     Indication: PRODUCT USED FOR UNKNOWN INDICATION
     Dosage: 5 MG, BID
     Route: 065
  4. FLUOXETINE [Interacting]
     Active Substance: FLUOXETINE HYDROCHLORIDE
     Indication: PRODUCT USED FOR UNKNOWN INDICATION
     Dosage: 20 MG, UNKNOWN
     Route: 065
  5. SULFASALAZINE. [Concomitant]
     Active Substance: SULFASALAZINE
     Indication: PRODUCT USED FOR UNKNOWN INDICATION
     Dosage: 500 MG, BID
     Route: 065
  6. CAPTOPRIL. [Concomitant]
     Active Substance: CAPTOPRIL
     Indication: PRODUCT USED FOR UNKNOWN INDICATION
     Dosage: 25 MG, BID
     Route: 065
  7. VITAMIN D3 [Concomitant]
     Active Substance: CHOLECALCIFEROL
     Indication: PRODUCT USED FOR UNKNOWN INDICATION
     Dosage: UNK, ONCE A WEEK
     Route: 065
  8. FLUOXETINE [Interacting]
     Active Substance: FLUOXETINE HYDROCHLORIDE
     Dosage: 30 MG, UNKNOWN
     Route: 065
  9. BROMHEXINE [Concomitant]
     Active Substance: BROMHEXINE
     Indication: PRODUCT USED FOR UNKNOWN INDICATION
     Dosage: UNK
     Route: 065

REACTIONS (22)
  - Serotonin syndrome [Recovered/Resolved]
  - Ataxia [Recovered/Resolved]
  - Dizziness [Recovered/Resolved]
  - Headache [Recovered/Resolved]
  - Delirium [Recovered/Resolved]
  - Clonus [Recovered/Resolved]
  - Drug interaction [Unknown]
  - Balance disorder [Recovered/Resolved]
  - Vomiting [Recovered/Resolved]
  - Mydriasis [Recovered/Resolved]
  - Disorganised speech [Recovered/Resolved]
  - Coordination abnormal [Recovered/Resolved]
  - Nausea [Recovered/Resolved]
  - Confusional state [Recovered/Resolved]
  - Tremor [Recovered/Resolved]
  - Inappropriate antidiuretic hormone secretion [Recovered/Resolved]
  - Hyperreflexia [Recovered/Resolved]
  - Hyperhidrosis [Recovered/Resolved]
  - Hyponatraemia [Recovered/Resolved]
  - Fall [Recovered/Resolved]
  - Loss of consciousness [Recovered/Resolved]
  - Consciousness fluctuating [Recovered/Resolved]
